FAERS Safety Report 21270232 (Version 1)
Quarter: 2022Q3

REPORT INFORMATION
  Report Type: Spontaneous
  Country: JP (occurrence: None)
  Receive Date: 20220830
  Receipt Date: 20220830
  Transmission Date: 20221027
  Serious: Yes (Other)
  Sender: FDA-Public Use
  Company Number: 2022A300486

PATIENT
  Age: 79 Year
  Sex: Male

DRUGS (6)
  1. IMFINZI [Suspect]
     Active Substance: DURVALUMAB
     Indication: Small cell lung cancer
     Dosage: DOSE UNKNOWN
     Route: 041
     Dates: start: 20210609
  2. CARBOPLATIN [Concomitant]
     Active Substance: CARBOPLATIN
     Indication: Small cell lung cancer
     Dosage: DOSE UNKNOWN
     Route: 065
  3. ETOPOSIDE [Concomitant]
     Active Substance: ETOPOSIDE
     Indication: Small cell lung cancer
     Dosage: DOSE UNKNOWN
     Route: 065
  4. AZITHROMYCIN DIHYDRATE [Concomitant]
     Active Substance: AZITHROMYCIN DIHYDRATE
     Dosage: DOSE UNKNOWN
     Route: 065
  5. MEPOLIZUMAB [Concomitant]
     Active Substance: MEPOLIZUMAB
     Indication: Small cell lung cancer
     Dosage: DOSE UNKNOWN
     Route: 065
  6. OMALIZUMAB [Concomitant]
     Active Substance: OMALIZUMAB
     Indication: Small cell lung cancer
     Dosage: DOSE UNKNOWN
     Route: 065

REACTIONS (1)
  - Hypercalcaemia [Unknown]
